FAERS Safety Report 12468157 (Version 2)
Quarter: 2016Q3

REPORT INFORMATION
  Report Type: Spontaneous
  Country: US (occurrence: US)
  Receive Date: 20160615
  Receipt Date: 20160916
  Transmission Date: 20161109
  Serious: No
  Sender: FDA-Public Use
  Company Number: US-009507513-1606USA000115

PATIENT
  Sex: Female

DRUGS (3)
  1. CITALOPRAM [Concomitant]
     Active Substance: CITALOPRAM HYDROBROMIDE
     Dosage: UNK
  2. FOSAMAX [Suspect]
     Active Substance: ALENDRONATE SODIUM
     Indication: OSTEOPATHIC TREATMENT
     Dosage: 70 MG (1 TABLET), QW
     Route: 048
     Dates: start: 2000, end: 20160419
  3. LATANOPROST. [Concomitant]
     Active Substance: LATANOPROST
     Dosage: UNK

REACTIONS (3)
  - Dry mouth [Not Recovered/Not Resolved]
  - Loose tooth [Not Recovered/Not Resolved]
  - Dental caries [Not Recovered/Not Resolved]
